FAERS Safety Report 12638724 (Version 1)
Quarter: 2016Q3

REPORT INFORMATION
  Report Type: Spontaneous
  Country: US (occurrence: US)
  Receive Date: 20160809
  Receipt Date: 20160809
  Transmission Date: 20161109
  Serious: No
  Sender: FDA-Public Use
  Company Number: US-MEDA-2016070112

PATIENT
  Age: 30 Year
  Sex: Female
  Weight: 44 kg

DRUGS (9)
  1. ZONISAMIDE. [Concomitant]
     Active Substance: ZONISAMIDE
  2. CLOBAZAM [Concomitant]
     Active Substance: CLOBAZAM
  3. RISPERIDONE. [Suspect]
     Active Substance: RISPERIDONE
  4. MIRENA [Concomitant]
     Active Substance: LEVONORGESTREL
     Route: 015
  5. CITALOPRAM [Concomitant]
     Active Substance: CITALOPRAM HYDROBROMIDE
  6. VITAMIN B12 [Concomitant]
     Active Substance: CYANOCOBALAMIN
  7. FELBATOL [Suspect]
     Active Substance: FELBAMATE
     Indication: EPILEPSY
     Route: 048
     Dates: start: 20160406
  8. VITAMIN D [Concomitant]
     Active Substance: CHOLECALCIFEROL
  9. RISPERIDONE. [Suspect]
     Active Substance: RISPERIDONE
     Dates: start: 20160512

REACTIONS (2)
  - Mean cell volume increased [Not Recovered/Not Resolved]
  - Blood creatinine increased [Not Recovered/Not Resolved]

NARRATIVE: CASE EVENT DATE: 201606
